FAERS Safety Report 9154905 (Version 1)
Quarter: 2013Q1

REPORT INFORMATION
  Report Type: Spontaneous
  Country: RO (occurrence: RO)
  Receive Date: 20130311
  Receipt Date: 20130311
  Transmission Date: 20140127
  Serious: Yes (Death)
  Sender: FDA-Public Use
  Company Number: RO-ASTRAZENECA-2013SE15565

PATIENT
  Age: 79 Year
  Sex: Female

DRUGS (6)
  1. MEROPENEM [Suspect]
     Indication: PSEUDOMONAS INFECTION
     Route: 042
  2. MEROPENEM [Suspect]
     Indication: CANDIDA INFECTION
     Route: 042
  3. ANIDULAFUNGIN [Suspect]
     Indication: PSEUDOMONAS INFECTION
  4. ANIDULAFUNGIN [Suspect]
     Indication: CANDIDA INFECTION
  5. METRONIDAZOLE [Concomitant]
  6. VANCOMYCIN [Concomitant]

REACTIONS (2)
  - Thrombocytopenia [Fatal]
  - Hypokalaemia [Fatal]
